FAERS Safety Report 8473976-3 (Version None)
Quarter: 2012Q2

REPORT INFORMATION
  Report Type: 
  Country: None (occurrence: None)
  Receive Date: 20120628
  Receipt Date: 20120419
  Transmission Date: 20120825
  Serious: Yes (Other)
  Sender: FDA-Public Use
  Company Number: US-MYLANLABS-2012S1004819

PATIENT
  Age: 55 Year
  Sex: Male

DRUGS (5)
  1. CLOZAPINE [Suspect]
     Indication: SCHIZOPHRENIA
     Route: 048
     Dates: end: 20120104
  2. CLOZAPINE [Suspect]
     Route: 048
     Dates: end: 20120104
  3. RISPERIDONE [Concomitant]
     Route: 048
  4. CLONAZEPAM [Concomitant]
     Route: 048
  5. ZYPREXA [Concomitant]

REACTIONS (1)
  - LEUKOPENIA [None]
